FAERS Safety Report 13733830 (Version 2)
Quarter: 2017Q3

REPORT INFORMATION
  Report Type: Spontaneous
  Country: US (occurrence: US)
  Receive Date: 20170707
  Receipt Date: 20170721
  Transmission Date: 20171127
  Serious: Yes (Hospitalization, Other)
  Sender: FDA-Public Use
  Company Number: US-PRINSTON PHARMACEUTICAL INC.-2017PRN00287

PATIENT
  Age: 80 Year
  Sex: Male
  Weight: 77.98 kg

DRUGS (10)
  1. POTASSIUM CLER [Concomitant]
     Active Substance: POTASSIUM CHLORIDE
     Dosage: 2 CAPSULES, 2X/DAY
  2. IRBESARTAN. [Suspect]
     Active Substance: IRBESARTAN
     Indication: HYPERTENSION
     Dosage: 300 MG, 1X/DAY
     Route: 048
     Dates: start: 20160511
  3. TAMSULOSIN HCL [Concomitant]
     Active Substance: TAMSULOSIN
     Indication: BENIGN PROSTATIC HYPERPLASIA
     Dosage: 0.4 MG, 1X/DAY
  4. BENAZEPRIL HCL [Concomitant]
     Active Substance: BENAZEPRIL HYDROCHLORIDE
     Dosage: 40 MG, 2X/DAY
  5. ALPHAGAN 2 [Concomitant]
     Indication: GLAUCOMA
     Dosage: 1 DOSAGE UNITS, 2X/DAY TO BOTH EYES
  6. SERTRALINE HCL [Concomitant]
     Active Substance: SERTRALINE HYDROCHLORIDE
     Indication: DEPRESSION
     Dosage: 100 MG, 1X/DAY
  7. AREDS2 VITAMIN [Concomitant]
     Dosage: UNK
  8. METOPROLOL TARTRATE. [Concomitant]
     Active Substance: METOPROLOL TARTRATE
     Dosage: 100 MG, 2X/DAY
  9. TRIAMTERENE-HCTZ [Concomitant]
     Active Substance: HYDROCHLOROTHIAZIDE\TRIAMTERENE
     Dosage: 1 DOSAGE UNITS (37.5/25MG), 1X/DAY
  10. PSYLLIUM FIBER [Concomitant]

REACTIONS (9)
  - Urinary retention [Recovering/Resolving]
  - Aphasia [Recovering/Resolving]
  - Hypertensive emergency [Recovered/Resolved]
  - Cerebral haemorrhage [Recovering/Resolving]
  - Alexia [Recovering/Resolving]
  - Memory impairment [Recovering/Resolving]
  - Headache [Recovered/Resolved]
  - Dysgeusia [Recovering/Resolving]
  - Leukocytosis [Unknown]

NARRATIVE: CASE EVENT DATE: 201608
